FAERS Safety Report 11896040 (Version 2)
Quarter: 2017Q1

REPORT INFORMATION
  Report Type: Spontaneous
  Country: US (occurrence: US)
  Receive Date: 20160107
  Receipt Date: 20170113
  Transmission Date: 20170428
  Serious: Yes (Hospitalization, Other)
  Sender: FDA-Public Use
  Company Number: US-ELI_LILLY_AND_COMPANY-US201601000854

PATIENT
  Sex: Female

DRUGS (2)
  1. CYMBALTA [Suspect]
     Active Substance: DULOXETINE HYDROCHLORIDE
     Indication: ANXIETY
     Dosage: 60 MG, QD
     Route: 048
     Dates: start: 2008
  2. CYMBALTA [Suspect]
     Active Substance: DULOXETINE HYDROCHLORIDE
     Indication: BIPOLAR DISORDER

REACTIONS (9)
  - Intentional self-injury [Unknown]
  - Mood swings [Unknown]
  - Insomnia [Unknown]
  - Paraesthesia [Unknown]
  - Palpitations [Unknown]
  - Suicidal ideation [Unknown]
  - Aggression [Unknown]
  - Vertigo [Unknown]
  - Drug withdrawal syndrome [Unknown]
